FAERS Safety Report 16059478 (Version 1)
Quarter: 2019Q1

REPORT INFORMATION
  Report Type: Spontaneous
  Country: US (occurrence: US)
  Receive Date: 20190311
  Receipt Date: 20190311
  Transmission Date: 20190418
  Serious: No
  Sender: FDA-Public Use
  Company Number: US-009507513-1902USA011523

PATIENT
  Age: 62 Year
  Sex: Male

DRUGS (4)
  1. PYRIDOXINE [Concomitant]
     Active Substance: PYRIDOXINE
     Dosage: 1 (ORAL) THREE TIMES DAILY
     Route: 048
  2. ASPIRIN. [Concomitant]
     Active Substance: ASPIRIN
     Dosage: 3 (ORAL) DAILY
     Route: 048
  3. PRINIVIL [Suspect]
     Active Substance: LISINOPRIL
     Dosage: UNK
     Route: 048
  4. FENOFIBRATE. [Concomitant]
     Active Substance: FENOFIBRATE
     Dosage: 1 (ORAL) DAILY
     Route: 048

REACTIONS (3)
  - Burning sensation [Unknown]
  - Swelling [Unknown]
  - Allergic cough [Unknown]

NARRATIVE: CASE EVENT DATE: 20151030
